FAERS Safety Report 8071574-7 (Version None)
Quarter: 2012Q1

REPORT INFORMATION
  Report Type: 
  Country: None (occurrence: None)
  Receive Date: 20120125
  Receipt Date: 20120110
  Transmission Date: 20120608
  Serious: Yes (Hospitalization)
  Sender: FDA-Public Use
  Company Number: FR-PFIZER INC-2012020506

PATIENT
  Age: 72 Year
  Sex: Male

DRUGS (10)
  1. ZANTAC [Suspect]
     Dosage: 25 MG, UNK
     Route: 042
     Dates: start: 20111123
  2. POLARAMINE [Suspect]
     Dosage: 2.5 MG, UNK
     Route: 048
     Dates: start: 20111123
  3. PACLITAXEL [Suspect]
     Indication: TRANSITIONAL CELL CARCINOMA
     Dosage: 160 MG, UNK
     Route: 042
     Dates: start: 20111116, end: 20111116
  4. PACLITAXEL [Suspect]
     Dosage: 160 MG, UNK
     Route: 042
     Dates: start: 20111123
  5. ZANTAC [Suspect]
     Indication: PREMEDICATION
     Dosage: 50 MG, UNK
     Route: 042
     Dates: start: 20111116, end: 20111116
  6. ONDANSETRON HCL [Suspect]
     Indication: PREMEDICATION
     Dosage: 8 MG, UNK
     Route: 042
     Dates: start: 20111116, end: 20111116
  7. CARBOPLATIN [Suspect]
     Dosage: 190 MG, UNK
     Route: 042
     Dates: start: 20111123
  8. POLARAMINE [Suspect]
     Indication: PREMEDICATION
     Dosage: 2 MG, UNK
     Route: 048
     Dates: start: 20111116, end: 20111116
  9. CARBOPLATIN [Suspect]
     Indication: TRANSITIONAL CELL CARCINOMA
     Dosage: 120 MG, UNK
     Route: 042
     Dates: start: 20111116, end: 20111116
  10. METHYLPREDNISOLONE [Suspect]
     Indication: PREMEDICATION
     Dosage: 60 MG, UNK
     Route: 042
     Dates: start: 20111116, end: 20111116

REACTIONS (2)
  - HYPERSENSITIVITY [None]
  - ERYTHEMA [None]
